FAERS Safety Report 5721734-2 (Version None)
Quarter: 2008Q2

REPORT INFORMATION
  Report Type: 
  Country: None (occurrence: None)
  Receive Date: 20080429
  Receipt Date: 20070410
  Transmission Date: 20081010
  Serious: No
  Sender: FDA-Public Use
  Company Number: US-ASTRAZENECA-2007UW07045

PATIENT
  Age: 23 Year
  Sex: Male
  Weight: 87.5 kg

DRUGS (2)
  1. NEXIUM [Suspect]
     Indication: GASTROOESOPHAGEAL REFLUX DISEASE
     Route: 048
  2. AMOXIL [Concomitant]
     Indication: SINUSITIS

REACTIONS (1)
  - JAUNDICE [None]
